FAERS Safety Report 8318687-X (Version None)
Quarter: 2012Q2

REPORT INFORMATION
  Report Type: 
  Country: None (occurrence: None)
  Receive Date: 20120427
  Receipt Date: 20120418
  Transmission Date: 20120825
  Serious: Yes (Hospitalization)
  Sender: FDA-Public Use
  Company Number: DE-TEVA-334909GER

PATIENT
  Sex: Female
  Weight: 52 kg

DRUGS (6)
  1. BEVACIZUMAB [Suspect]
     Indication: BREAST CANCER
     Route: 042
     Dates: start: 20120123
  2. DOXORUBICIN HCL [Suspect]
     Indication: BREAST CANCER
     Route: 042
     Dates: start: 20120123, end: 20120410
  3. CARBOPLATIN [Suspect]
     Indication: BREAST CANCER
     Route: 042
     Dates: start: 20120123, end: 20120410
  4. PACLITAXEL [Suspect]
     Indication: BREAST CANCER
     Route: 042
     Dates: start: 20120123, end: 20120410
  5. IBUPROFEN 600 [Concomitant]
     Dosage: 600 MILLIGRAM;
     Dates: start: 20120306
  6. PROCULIN AUGENTROPFEN [Concomitant]
     Dosage: 1 GTT;
     Route: 047
     Dates: start: 20120320

REACTIONS (2)
  - CELLULITIS [None]
  - EXTRAVASATION [None]
